FAERS Safety Report 16257207 (Version 1)
Quarter: 2019Q2

REPORT INFORMATION
  Report Type: Spontaneous
  Country: NL (occurrence: NL)
  Receive Date: 20190430
  Receipt Date: 20190430
  Transmission Date: 20190711
  Serious: Yes (Death)
  Sender: FDA-Public Use
  Company Number: NL-PFIZER INC-2019182566

PATIENT
  Age: 68 Year
  Sex: Male
  Weight: 88 kg

DRUGS (1)
  1. SILDENAFIL CITRATE. [Suspect]
     Active Substance: SILDENAFIL CITRATE
     Indication: ERECTILE DYSFUNCTION
     Dosage: 1 DF, 1X/DAY (1X/DAY FROM 0.5 TO 1 TABLET)
     Dates: start: 20181012, end: 20181012

REACTIONS (1)
  - Death [Fatal]

NARRATIVE: CASE EVENT DATE: 20181012
